FAERS Safety Report 9124188 (Version 3)
Quarter: 2013Q1

REPORT INFORMATION
  Report Type: Spontaneous
  Country: US (occurrence: US)
  Receive Date: 20130227
  Receipt Date: 20130322
  Transmission Date: 20140127
  Serious: Yes (Other)
  Sender: FDA-Public Use
  Company Number: US-PFIZER INC-2013066936

PATIENT
  Sex: Female

DRUGS (7)
  1. ZOLOFT [Suspect]
     Indication: POST-TRAUMATIC STRESS DISORDER
     Dosage: 100 MG, 1X/DAY
     Route: 048
     Dates: start: 199907, end: 20130219
  2. LORATADINE [Concomitant]
     Indication: HYPERSENSITIVITY
     Dosage: 10 MG, UNK
  3. CALCIUM D3 [Concomitant]
     Indication: VITAMIN SUPPLEMENTATION
     Dosage: UNK
  4. DICYCLOMINE [Concomitant]
     Indication: IRRITABLE BOWEL SYNDROME
     Dosage: 10 MG, UNK
  5. BIOTIN [Concomitant]
     Indication: SKIN DISORDER
     Dosage: 5000 UG, UNK
  6. BIOTIN [Concomitant]
     Indication: HAIR DISORDER
  7. BIOTIN [Concomitant]
     Indication: NAIL DISORDER

REACTIONS (1)
  - Convulsion [Unknown]
